FAERS Safety Report 5792619-0 (Version None)
Quarter: 2008Q2

REPORT INFORMATION
  Report Type: 
  Country: None (occurrence: None)
  Receive Date: 20080626
  Receipt Date: 20080616
  Transmission Date: 20081010
  Serious: Yes (Disabling)
  Sender: FDA-Public Use
  Company Number: BR-PFIZER INC-2008051932

PATIENT
  Sex: Female

DRUGS (1)
  1. CITALOR [Suspect]
     Route: 048

REACTIONS (1)
  - MUSCULOSKELETAL PAIN [None]
